FAERS Safety Report 4394938-1 (Version None)
Quarter: 2004Q3

REPORT INFORMATION
  Report Type: 
  Country: None (occurrence: None)
  Receive Date: 20040712
  Receipt Date: 20040629
  Transmission Date: 20050211
  Serious: Yes (Hospitalization)
  Sender: FDA-Public Use
  Company Number: FR-GLAXOSMITHKLINE-B0337178A

PATIENT
  Age: 49 Year
  Sex: Female

DRUGS (9)
  1. ZOPHREN [Suspect]
     Dosage: 2MG SINGLE DOSE
     Route: 042
     Dates: start: 20040604, end: 20040604
  2. FERVEX [Suspect]
     Route: 048
     Dates: start: 20040605, end: 20040605
  3. LASILIX [Suspect]
     Dosage: 40MG UNKNOWN
     Route: 048
  4. DETICENE [Suspect]
     Indication: METASTATIC MALIGNANT MELANOMA
     Dosage: 1000MG SINGLE DOSE
     Route: 042
     Dates: start: 20040604, end: 20040604
  5. LEXOMIL [Suspect]
     Dosage: 12MG PER DAY
     Route: 048
     Dates: start: 20040603, end: 20040604
  6. DAFALGAN [Concomitant]
     Route: 048
     Dates: start: 20040605, end: 20040610
  7. BRONCHOKOD [Concomitant]
     Route: 065
     Dates: start: 20040605, end: 20040610
  8. OROPIVALONE [Concomitant]
     Route: 065
     Dates: start: 20040605, end: 20040610
  9. HEXASPRAY [Concomitant]
     Route: 065
     Dates: start: 20040605, end: 20040610

REACTIONS (2)
  - SKIN NECROSIS [None]
  - VASCULITIS [None]
